FAERS Safety Report 11080720 (Version 1)
Quarter: 2015Q2

REPORT INFORMATION
  Report Type: Spontaneous
  Country: JP (occurrence: JP)
  Receive Date: 20150501
  Receipt Date: 20150501
  Transmission Date: 20150821
  Serious: Yes (Other)
  Sender: FDA-Public Use
  Company Number: JP-SUN PHARMACEUTICAL INDUSTRIES LTD-2014R1-77928

PATIENT
  Age: 85 Year
  Sex: Male

DRUGS (1)
  1. METRONIDAZOLE. [Suspect]
     Active Substance: METRONIDAZOLE
     Indication: PSEUDOMEMBRANOUS COLITIS
     Dosage: UNK
     Route: 065

REACTIONS (1)
  - Toxic encephalopathy [Recovering/Resolving]
